FAERS Safety Report 11467395 (Version 1)
Quarter: 2015Q3

REPORT INFORMATION
  Report Type: Spontaneous
  Country: US (occurrence: None)
  Receive Date: 20150903
  Receipt Date: 20150903
  Transmission Date: 20151125
  Serious: Yes (Congenital Anomaly)
  Sender: FDA-Public Use
  Company Number: None

PATIENT
  Age: 35 Year
  Sex: Female
  Weight: 104.78 kg

DRUGS (5)
  1. PNV [Concomitant]
  2. VICTOZA [Concomitant]
     Active Substance: LIRAGLUTIDE
  3. GLUCOPHAGE [Concomitant]
     Active Substance: METFORMIN HYDROCHLORIDE
  4. VICTOZA [Suspect]
     Active Substance: LIRAGLUTIDE
     Indication: TYPE 2 DIABETES MELLITUS
     Dosage: PRECONCEPTION TO 18 WEEKS GESTAT; UNDER SKIN
  5. DIOVAN [Concomitant]
     Active Substance: VALSARTAN

REACTIONS (1)
  - Prenatal screening test abnormal [None]

NARRATIVE: CASE EVENT DATE: 20150902
